FAERS Safety Report 8450746-3 (Version None)
Quarter: 2012Q2

REPORT INFORMATION
  Report Type: 
  Country: None (occurrence: None)
  Receive Date: 20120620
  Receipt Date: 20120611
  Transmission Date: 20120825
  Serious: Yes (Other)
  Sender: FDA-Public Use
  Company Number: CA-JNJFOC-20120605333

PATIENT
  Sex: Male
  Weight: 95 kg

DRUGS (7)
  1. VITAMIN [Concomitant]
     Route: 065
  2. CLOPIDOGREL [Concomitant]
     Route: 065
  3. IMURAN [Concomitant]
     Route: 065
  4. INFLIXIMAB [Suspect]
     Indication: CROHN'S DISEASE
     Route: 042
     Dates: start: 20090209
  5. ASPIRIN [Concomitant]
     Route: 065
  6. MULTI-VITAMINS [Concomitant]
     Route: 065
  7. FERROUS GLUCONATE [Concomitant]
     Route: 065

REACTIONS (1)
  - ATRIAL FIBRILLATION [None]
